FAERS Safety Report 17395283 (Version 1)
Quarter: 2020Q1

REPORT INFORMATION
  Report Type: Spontaneous
  Country: US (occurrence: US)
  Receive Date: 20200124
  Receipt Date: 20200124
  Transmission Date: 20200409
  Serious: No
  Sender: FDA-Public Use
  Company Number: None

PATIENT
  Sex: Female

DRUGS (1)
  1. AMBRISENTAN [Suspect]
     Active Substance: AMBRISENTAN
     Indication: COR PULMONALE
     Route: 048
     Dates: start: 20190824

REACTIONS (5)
  - Pulmonary fibrosis [None]
  - Respiratory disorder [None]
  - Condition aggravated [None]
  - Asthenia [None]
  - Presyncope [None]
